FAERS Safety Report 9806440 (Version 1)
Quarter: 2014Q1

REPORT INFORMATION
  Report Type: Spontaneous
  Country: US (occurrence: US)
  Receive Date: 20140109
  Receipt Date: 20140109
  Transmission Date: 20141002
  Serious: Yes (Death)
  Sender: FDA-Public Use
  Company Number: US-PFIZER INC-2014006026

PATIENT
  Age: 41 Year
  Sex: Female

DRUGS (5)
  1. VERAPAMIL HCL [Suspect]
  2. ALPRAZOLAM [Suspect]
  3. OLANZAPINE [Suspect]
  4. CYCLOBENZAPRINE [Suspect]
     Route: 048
  5. ACETAMINOPHEN W/OXYCODONE [Suspect]
     Route: 048

REACTIONS (1)
  - Completed suicide [Fatal]
